FAERS Safety Report 7584906-0 (Version None)
Quarter: 2011Q2

REPORT INFORMATION
  Report Type: 
  Country: None (occurrence: None)
  Receive Date: 20110630
  Receipt Date: 20110616
  Transmission Date: 20111010
  Serious: Yes (Hospitalization)
  Sender: FDA-Public Use
  Company Number: JP-GENENTECH-302981

PATIENT
  Sex: Male
  Weight: 49 kg

DRUGS (12)
  1. LEVOFLOXACIN [Concomitant]
     Indication: PRODUCT USED FOR UNKNOWN INDICATION
     Dosage: UNK
     Dates: start: 20100101
  2. RANIBIZUMAB [Suspect]
     Dosage: 0.05 ML, UNK
     Route: 031
     Dates: start: 20100421
  3. LEVOFLOXACIN [Concomitant]
     Dosage: UNK
     Dates: start: 20100526
  4. TIENAM [Concomitant]
     Indication: PRODUCT USED FOR UNKNOWN INDICATION
  5. ANTIBIOTICS (NOT SPECIFIED) [Concomitant]
     Indication: PROPHYLAXIS
     Dosage: UNK
  6. AVASTIN [Concomitant]
     Indication: PRODUCT USED FOR UNKNOWN INDICATION
     Dosage: UNK
     Dates: start: 20080901
  7. BESITRAN [Concomitant]
     Indication: PRODUCT USED FOR UNKNOWN INDICATION
  8. RANIBIZUMAB [Suspect]
     Dosage: 0.05 ML, UNK
     Route: 031
     Dates: start: 20100526, end: 20100705
  9. VISUDYNE [Concomitant]
     Indication: PRODUCT USED FOR UNKNOWN INDICATION
     Dosage: UNK
     Dates: start: 20100127
  10. RANIBIZUMAB [Suspect]
     Indication: AGE-RELATED MACULAR DEGENERATION
     Dosage: 0.05 ML, UNK
     Route: 031
     Dates: start: 20100120
  11. BANAN [Concomitant]
     Indication: PRODUCT USED FOR UNKNOWN INDICATION
  12. LEVOFLOXACIN [Concomitant]
     Dosage: UNK
     Dates: start: 20100401

REACTIONS (6)
  - ANTERIOR CHAMBER FLARE [None]
  - VISUAL ACUITY REDUCED [None]
  - VISION BLURRED [None]
  - PSEUDOENDOPHTHALMITIS [None]
  - CONJUNCTIVAL HYPERAEMIA [None]
  - OPHTHALMOLOGICAL EXAMINATION ABNORMAL [None]
